FAERS Safety Report 18138556 (Version 1)
Quarter: 2020Q3

REPORT INFORMATION
  Report Type: Spontaneous
  Country: US (occurrence: US)
  Receive Date: 20200811
  Receipt Date: 20200811
  Transmission Date: 20201103
  Serious: Yes (Hospitalization)
  Sender: FDA-Public Use
  Company Number: None

PATIENT
  Sex: Female
  Weight: 71.7 kg

DRUGS (3)
  1. CELEXA [Suspect]
     Active Substance: CITALOPRAM HYDROBROMIDE
  2. OLANZAPINE 40MG [Suspect]
     Active Substance: OLANZAPINE
  3. ZOFRAN [Suspect]
     Active Substance: ONDANSETRON HYDROCHLORIDE

REACTIONS (5)
  - Skin burning sensation [None]
  - Left ventricular hypertrophy [None]
  - Syncope [None]
  - Dizziness [None]
  - Ejection fraction decreased [None]

NARRATIVE: CASE EVENT DATE: 20200804
